FAERS Safety Report 11465207 (Version 1)
Quarter: 2015Q3

REPORT INFORMATION
  Report Type: Spontaneous
  Country: CA (occurrence: CA)
  Receive Date: 20150907
  Receipt Date: 20150907
  Transmission Date: 20151125
  Serious: Yes (Other)
  Sender: FDA-Public Use
  Company Number: CA-ROCHE-1630120

PATIENT
  Age: 54 Year
  Sex: Male

DRUGS (5)
  1. RITUXAN [Suspect]
     Active Substance: RITUXIMAB
     Indication: B-CELL LYMPHOMA
     Dosage: THERAPY DURATION 185 DAYS
     Route: 065
  2. VINCRISTINE [Suspect]
     Active Substance: VINCRISTINE
     Indication: B-CELL LYMPHOMA
     Dosage: THERAPY DURATION 243 DAYS
     Route: 065
  3. RITUXAN [Suspect]
     Active Substance: RITUXIMAB
     Dosage: THERAPY DURATION 243 DAYS
     Route: 065
  4. PROCYTOX [Suspect]
     Active Substance: CYCLOPHOSPHAMIDE
     Indication: B-CELL LYMPHOMA
     Dosage: THERAPY DURATION 243 DAYS
     Route: 065
  5. PREDNISONE. [Suspect]
     Active Substance: PREDNISONE
     Indication: B-CELL LYMPHOMA
     Dosage: THERAPY DURATION 243 DAYS
     Route: 065

REACTIONS (1)
  - Malignant neoplasm progression [Unknown]
